FAERS Safety Report 12344148 (Version 4)
Quarter: 2020Q3

REPORT INFORMATION
  Report Type: Spontaneous
  Country: US (occurrence: US)
  Receive Date: 20160507
  Receipt Date: 20200708
  Transmission Date: 20201102
  Serious: Yes (Hospitalization)
  Sender: FDA-Public Use
  Company Number: US-JNJFOC-20160320905

PATIENT
  Age: 79 Year
  Sex: Female

DRUGS (2)
  1. XARELTO [Suspect]
     Active Substance: RIVAROXABAN
     Indication: CARDIAC ASSISTANCE DEVICE USER
     Dosage: 20 MG/30 MG
     Route: 048
     Dates: start: 20131108, end: 20140501
  2. ASPIRIN. [Suspect]
     Active Substance: ASPIRIN
     Indication: PRODUCT USED FOR UNKNOWN INDICATION
     Route: 065

REACTIONS (5)
  - Gastrointestinal haemorrhage [Recovering/Resolving]
  - Small intestinal haemorrhage [Recovering/Resolving]
  - Product use in unapproved indication [Unknown]
  - Off label use [Unknown]
  - Anaemia [Unknown]

NARRATIVE: CASE EVENT DATE: 20140203
